FAERS Safety Report 6057441-9 (Version None)
Quarter: 2009Q1

REPORT INFORMATION
  Report Type: 
  Country: None (occurrence: None)
  Receive Date: 20090129
  Receipt Date: 20080722
  Transmission Date: 20090719
  Serious: Yes (Other)
  Sender: FDA-Public Use
  Company Number: PHHY2008BR09762

PATIENT
  Sex: Male
  Weight: 80 kg

DRUGS (1)
  1. EXFORGE [Suspect]
     Indication: HYPERTENSION
     Dosage: 1 DF (160 MG VALSARTAN/5 MG AMLODIPINE), QD
     Route: 048
     Dates: start: 20080525

REACTIONS (6)
  - BLOOD PRESSURE INCREASED [None]
  - DIZZINESS [None]
  - JOINT SWELLING [None]
  - MUSCLE RIGIDITY [None]
  - PAIN [None]
  - TINNITUS [None]
